FAERS Safety Report 9227302 (Version 1)
Quarter: 2013Q2

REPORT INFORMATION
  Report Type: Spontaneous
  Country: US (occurrence: None)
  Receive Date: 20130411
  Receipt Date: 20130411
  Transmission Date: 20140414
  Serious: No
  Sender: FDA-Public Use
  Company Number: None

PATIENT
  Age: 57 Year
  Sex: Female

DRUGS (1)
  1. STIVARGA [Suspect]
     Indication: GASTROINTESTINAL STROMAL TUMOUR
     Route: 048
     Dates: start: 20130302, end: 20130409

REACTIONS (9)
  - Palmar-plantar erythrodysaesthesia syndrome [None]
  - Arthralgia [None]
  - Rash [None]
  - Stomatitis [None]
  - Joint stiffness [None]
  - Toothache [None]
  - Headache [None]
  - Fatigue [None]
  - Constipation [None]
